FAERS Safety Report 4503044-4 (Version None)
Quarter: 2004Q4

REPORT INFORMATION
  Report Type: 
  Country: None (occurrence: None)
  Receive Date: 20041116
  Receipt Date: 20041116
  Transmission Date: 20050328
  Serious: Yes (Hospitalization)
  Sender: FDA-Public Use
  Company Number: None

PATIENT
  Age: 70 Year
  Sex: Male
  Weight: 97.5234 kg

DRUGS (20)
  1. WARFARIN SODIUM [Suspect]
     Indication: ATRIAL FIBRILLATION
     Dosage: SEE IMAGE
     Dates: start: 20040804, end: 20040812
  2. ECOTRIN [Suspect]
     Indication: PROPHYLAXIS
  3. SALSALATE 750 MG [Suspect]
     Indication: ATRIAL FIBRILLATION
  4. ACCU-CHEK COMFORT CV (GLUCOSE) TEST STRIP [Concomitant]
  5. ALCOHOL PREP PAD [Concomitant]
  6. FELODIPINE [Concomitant]
  7. FOSINOPRIL NA [Concomitant]
  8. FUROSEMIDE [Concomitant]
  9. INSULIN SYRG [Concomitant]
  10. ISOSORBINE DINITRATE [Concomitant]
  11. LANCET, TECHLITE [Concomitant]
  12. METOPROLOL TARTRATE [Concomitant]
  13. NITROGLYERIN [Concomitant]
  14. PENTOXIPYLLINE [Concomitant]
  15. RANITIDINE HCL [Concomitant]
  16. SALSALATE [Concomitant]
  17. SIMVASTATIN [Concomitant]
  18. SPIRONOLACTONE [Concomitant]
  19. TERAZOSIN HCL [Concomitant]
  20. COUMADIN [Concomitant]

REACTIONS (3)
  - ANAEMIA [None]
  - INTERNATIONAL NORMALISED RATIO INCREASED [None]
  - LOWER GASTROINTESTINAL HAEMORRHAGE [None]
